FAERS Safety Report 6252185-2 (Version None)
Quarter: 2009Q2

REPORT INFORMATION
  Report Type: 
  Country: None (occurrence: None)
  Receive Date: 20090629
  Receipt Date: 20090618
  Transmission Date: 20091009
  Serious: Yes (Death)
  Sender: FDA-Public Use
  Company Number: 307766

PATIENT
  Age: 82 Year
  Sex: Male

DRUGS (24)
  1. GENTAMICIN [Suspect]
     Indication: CATHETER PLACEMENT
     Dosage: 120 MG (UNKNOWN)
     Dates: start: 20050628, end: 20050628
  2. CIPROFLOXACIN [Suspect]
     Indication: PNEUMONIA
     Dosage: 400 MG DOSE INCREASED INTRAVENOUS ORAL
     Dates: start: 20050628, end: 20050630
  3. CIPROFLOXACIN [Suspect]
     Indication: PNEUMONIA
     Dosage: 400 MG DOSE INCREASED INTRAVENOUS ORAL
     Dates: start: 20050630, end: 20050702
  4. FUROSEMIDE [Suspect]
     Indication: URINE OUTPUT DECREASED
     Dosage: 250 MG (UKNOWN) 40 (UKNOWN) INTRAVENOUS ORAL
     Dates: start: 20050630, end: 20050708
  5. CEFTRIAXONE [Concomitant]
  6. DALTEPARIN SODIUM [Concomitant]
  7. DOCUSATE [Concomitant]
  8. DOTHIEPIN HYDROCHLORIDE [Concomitant]
  9. HALOPERIDOL [Concomitant]
  10. HYOSCINE [Concomitant]
  11. IPRATROPIUM BROMIDE [Concomitant]
  12. METRONIDAZOLE [Concomitant]
  13. MIDAZOLAM HCL [Concomitant]
  14. MORPHINE SULFATE [Concomitant]
  15. MS CONTIN [Concomitant]
  16. OMEPRAZOLE [Concomitant]
  17. OMEPRAZOLE [Concomitant]
  18. ALBUTEROL [Concomitant]
  19. SANDO K [Concomitant]
  20. SODIUM BICARBONATE [Concomitant]
  21. TERBUTALINE SULFATE [Concomitant]
  22. WARFARIN SODIUM [Concomitant]
  23. POTASSIUM CHLORIDE [Concomitant]
  24. CALCICHEW D3 [Concomitant]

REACTIONS (8)
  - BLOOD POTASSIUM DECREASED [None]
  - CLOSTRIDIUM DIFFICILE COLITIS [None]
  - CONVULSION [None]
  - GASTROINTESTINAL HYPOMOTILITY [None]
  - GENERAL PHYSICAL HEALTH DETERIORATION [None]
  - LOWER RESPIRATORY TRACT INFECTION [None]
  - PULMONARY OEDEMA [None]
  - RENAL FAILURE [None]
